FAERS Safety Report 16857292 (Version 11)
Quarter: 2024Q3

REPORT INFORMATION
  Report Type: Report from Study
  Country: JP (occurrence: JP)
  Receive Date: 20190926
  Receipt Date: 20240826
  Transmission Date: 20241017
  Serious: Yes (Hospitalization)
  Sender: ABBVIE
  Company Number: JP-ABBVIE-19P-087-2925617-00

PATIENT
  Age: 80 Year
  Sex: Male
  Weight: 40 kg

DRUGS (2)
  1. CARBIDOPA\LEVODOPA [Suspect]
     Active Substance: CARBIDOPA\LEVODOPA
     Indication: Parkinson^s disease
     Dosage: LAST ADMIN DATE: 2019
     Route: 050
     Dates: start: 20190826
  2. CARBIDOPA\LEVODOPA [Suspect]
     Active Substance: CARBIDOPA\LEVODOPA
     Dosage: CONTINUOUS DOSE INCREASED
     Route: 050
     Dates: start: 20191120

REACTIONS (13)
  - Pneumonia aspiration [Unknown]
  - Discomfort [Unknown]
  - Feeding disorder [Unknown]
  - Dyslalia [Unknown]
  - Intentional device misuse [Unknown]
  - Weight decreased [Unknown]
  - Malaise [Unknown]
  - Asthenia [Unknown]
  - Stoma site erythema [Unknown]
  - Stoma site pain [Recovered/Resolved]
  - Therapeutic product effect decreased [Unknown]
  - Malaise [Unknown]
  - On and off phenomenon [Unknown]

NARRATIVE: CASE EVENT DATE: 20190101
